FAERS Safety Report 8931723 (Version 1)
Quarter: 2012Q4

REPORT INFORMATION
  Report Type: 
  Country: US (occurrence: US)
  Receive Date: 20121128
  Receipt Date: 20121128
  Transmission Date: 20130627
  Serious: No
  Sender: FDA-Public Use
  Company Number: US-B.I. PHARMACEUTICALS,INC./RIDGEFIELD-2012-BI-01102BP

PATIENT
  Sex: Female
  Weight: 64 kg

DRUGS (7)
  1. PRADAXA [Suspect]
     Indication: ATRIAL FIBRILLATION
     Dosage: 300 mg
     Route: 048
     Dates: start: 201205
  2. BABY ASPIRIN [Concomitant]
     Indication: CARDIAC DISORDER
     Dosage: 81 mg
     Route: 048
     Dates: start: 2009
  3. SERTRALINE [Concomitant]
     Indication: NERVOUSNESS
     Dosage: 50 mg
     Route: 048
     Dates: start: 2008
  4. MULTI VITAMIN [Concomitant]
     Indication: SUPPLEMENTATION THERAPY
     Route: 048
     Dates: start: 2007
  5. BENAZEPRIL HCT [Concomitant]
     Indication: HYPERTENSION
     Route: 048
     Dates: start: 2008
  6. LEVOTHYROXINE [Concomitant]
     Indication: HYPOTHYROIDISM
     Dosage: 0.075 mg
     Route: 048
     Dates: start: 1992
  7. CALCIUM WITH D [Concomitant]
     Indication: OSTEOPOROSIS
     Route: 048
     Dates: start: 2007

REACTIONS (2)
  - Foreign body [Not Recovered/Not Resolved]
  - Product quality issue [Recovered/Resolved]
